FAERS Safety Report 7920739 (Version 2)
Quarter: 2012Q4

REPORT INFORMATION
  Report Type: 
  Country: US (occurrence: US)
  Receive Date: 20110429
  Receipt Date: 20121112
  Transmission Date: 20130627
  Serious: No
  Sender: FDA-Public Use
  Company Number: US-ASTRAZENECA-2010SE15270

PATIENT
  Age: 86 Year
  Sex: Female

DRUGS (1)
  1. NEXIUM [Suspect]
     Route: 048

REACTIONS (4)
  - Herpes zoster [Unknown]
  - Mental disorder [Unknown]
  - Cognitive disorder [Unknown]
  - Hyperhidrosis [Unknown]
